FAERS Safety Report 9513543 (Version 1)
Quarter: 2013Q3

REPORT INFORMATION
  Report Type: Spontaneous
  Country: DE (occurrence: DE)
  Receive Date: 20130910
  Receipt Date: 20130910
  Transmission Date: 20140515
  Serious: Yes (Other)
  Sender: FDA-Public Use
  Company Number: DE-ABBOTT-13P-062-1144552-00

PATIENT
  Age: 68 Year
  Sex: Female

DRUGS (4)
  1. HUMIRA [Suspect]
     Indication: ARTHRITIS
  2. MTX [Concomitant]
     Indication: ARTHRITIS
  3. MTX [Concomitant]
  4. GLUCOCORTICOIDS [Concomitant]
     Indication: ARTHRITIS
     Route: 048

REACTIONS (2)
  - Tenosynovitis [Recovered/Resolved]
  - Mycobacterial infection [Recovered/Resolved]
